FAERS Safety Report 10235970 (Version 2)
Quarter: 2014Q3

REPORT INFORMATION
  Report Type: Spontaneous
  Country: US (occurrence: US)
  Receive Date: 20140613
  Receipt Date: 20140812
  Transmission Date: 20150326
  Serious: No
  Sender: FDA-Public Use
  Company Number: AX-ASTRAZENECA-2014SE39112

PATIENT
  Sex: Female

DRUGS (1)
  1. SYMBICORT [Suspect]
     Active Substance: BUDESONIDE\FORMOTEROL FUMARATE DIHYDRATE
     Dosage: 160/4.5 MCG, 2 PUFFS BID
     Route: 055

REACTIONS (5)
  - Osteoarthritis [Unknown]
  - Visual impairment [Unknown]
  - Circumstance or information capable of leading to medication error [Unknown]
  - Osteoporosis [Unknown]
  - Gait disturbance [Unknown]
